FAERS Safety Report 6434327-9 (Version None)
Quarter: 2009Q4

REPORT INFORMATION
  Report Type: 
  Country: None (occurrence: None)
  Receive Date: 20091110
  Receipt Date: 20090630
  Transmission Date: 20100525
  Serious: No
  Sender: FDA-Public Use
  Company Number: US-ASTRAZENECA-2009SE10191

PATIENT

DRUGS (3)
  1. PRILOSEC OTC [Suspect]
     Indication: GASTROOESOPHAGEAL REFLUX DISEASE
     Dosage: 1 TABLET, 1 /DAY
     Route: 048
  2. WARFARIN SODIUM [Concomitant]
     Dosage: UNKNOWN
  3. ATIVAN [Concomitant]
     Dosage: UNKNOWN

REACTIONS (4)
  - FLATULENCE [None]
  - GASTROINTESTINAL PAIN [None]
  - INCORRECT DRUG ADMINISTRATION DURATION [None]
  - LABELLED DRUG-DRUG INTERACTION MEDICATION ERROR [None]
